FAERS Safety Report 11197021 (Version 1)
Quarter: 2015Q2

REPORT INFORMATION
  Report Type: Spontaneous
  Country: US (occurrence: US)
  Receive Date: 20150617
  Receipt Date: 20150617
  Transmission Date: 20150821
  Serious: Yes (Hospitalization)
  Sender: FDA-Public Use
  Company Number: US-JNJFOC-20150607323

PATIENT
  Age: 50 Year
  Sex: Male
  Weight: 102.06 kg

DRUGS (5)
  1. REMICADE [Suspect]
     Active Substance: INFLIXIMAB
     Indication: ECZEMA
     Dosage: RECEIVED INITIAL DOSE AND LOADING DOSE
     Route: 042
     Dates: start: 2015
  2. REMICADE [Suspect]
     Active Substance: INFLIXIMAB
     Indication: PSORIASIS
     Dosage: RECEIVED INITIAL DOSE AND LOADING DOSE
     Route: 042
     Dates: start: 2015
  3. REMICADE [Suspect]
     Active Substance: INFLIXIMAB
     Indication: ECZEMA
     Dosage: SECOND INFUSION
     Route: 042
     Dates: start: 20150608
  4. REMICADE [Suspect]
     Active Substance: INFLIXIMAB
     Indication: PSORIASIS
     Dosage: SECOND INFUSION
     Route: 042
     Dates: start: 20150608
  5. BENADRYL [Concomitant]
     Active Substance: DIPHENHYDRAMINE HYDROCHLORIDE
     Indication: PREMEDICATION
     Route: 048
     Dates: start: 2015

REACTIONS (10)
  - Nausea [Unknown]
  - Dry mouth [Not Recovered/Not Resolved]
  - Inappropriate schedule of drug administration [Recovered/Resolved]
  - Product use issue [Unknown]
  - Impaired driving ability [Recovered/Resolved]
  - Infusion related reaction [Not Recovered/Not Resolved]
  - Hypersensitivity [Unknown]
  - Swollen tongue [Not Recovered/Not Resolved]
  - Joint stiffness [Unknown]
  - Arthralgia [Unknown]

NARRATIVE: CASE EVENT DATE: 2015
